FAERS Safety Report 8459889-1 (Version None)
Quarter: 2012Q2

REPORT INFORMATION
  Report Type: 
  Country: None (occurrence: None)
  Receive Date: 20120622
  Receipt Date: 20120613
  Transmission Date: 20120825
  Serious: Yes (Hospitalization, Other)
  Sender: FDA-Public Use
  Company Number: JP-VERTEX PHARMACEUTICALS INC.-AE-2012-006314

PATIENT
  Age: 62 Year
  Sex: Male

DRUGS (12)
  1. REBETOL [Concomitant]
     Indication: HEPATITIS C
     Route: 048
     Dates: start: 20120305, end: 20120325
  2. REBETOL [Concomitant]
     Route: 048
     Dates: start: 20120409
  3. PEG-INTRON [Concomitant]
     Route: 058
     Dates: start: 20120423
  4. TELAVIC (TELAPREVIR) [Suspect]
     Indication: HEPATITIS C
     Route: 048
     Dates: start: 20120305, end: 20120501
  5. ZOLPIDEM [Concomitant]
     Route: 048
     Dates: end: 20120513
  6. TELAVIC (TELAPREVIR) [Suspect]
     Route: 048
     Dates: start: 20120502, end: 20120528
  7. LIVALO [Concomitant]
     Route: 048
  8. PEG-INTRON [Concomitant]
     Indication: HEPATITIS C
     Route: 058
     Dates: start: 20120305, end: 20120416
  9. CANDESARTAN CILEXETIL [Concomitant]
     Route: 048
  10. ADALAT CC [Concomitant]
     Route: 048
  11. URSO 250 [Concomitant]
     Route: 048
     Dates: start: 20120402
  12. REBETOL [Concomitant]
     Route: 048
     Dates: start: 20120326, end: 20120408

REACTIONS (3)
  - BLOOD CREATININE INCREASED [None]
  - HYPERURICAEMIA [None]
  - RASH [None]
